FAERS Safety Report 18592044 (Version 5)
Quarter: 2021Q1

REPORT INFORMATION
  Report Type: Spontaneous
  Country: JP (occurrence: JP)
  Receive Date: 20201208
  Receipt Date: 20210108
  Transmission Date: 20210419
  Serious: Yes (Hospitalization)
  Sender: FDA-Public Use
  Company Number: JP-ABBVIE-20K-087-3266854-00

PATIENT
  Age: 47 Year
  Sex: Female

DRUGS (8)
  1. DUODOPA [Suspect]
     Active Substance: CARBIDOPA\LEVODOPA
     Indication: PARKINSON^S DISEASE
     Dosage: MORE THAN A YEAR
     Route: 050
     Dates: start: 20180216
  2. DUODOPA [Suspect]
     Active Substance: CARBIDOPA\LEVODOPA
     Route: 050
  3. DUODOPA [Suspect]
     Active Substance: CARBIDOPA\LEVODOPA
     Route: 050
  4. DUODOPA [Suspect]
     Active Substance: CARBIDOPA\LEVODOPA
     Route: 050
  5. CARBIDOPA HYDRATE? LEVODOPA MIXTURE [Concomitant]
     Indication: PRODUCT USED FOR UNKNOWN INDICATION
     Route: 048
  6. DUODOPA [Suspect]
     Active Substance: CARBIDOPA\LEVODOPA
     Route: 050
  7. DUODOPA [Suspect]
     Active Substance: CARBIDOPA\LEVODOPA
     Route: 050
  8. DUODOPA [Suspect]
     Active Substance: CARBIDOPA\LEVODOPA
     Route: 050

REACTIONS (35)
  - Akinesia [Unknown]
  - On and off phenomenon [Unknown]
  - Dyskinesia [Unknown]
  - Dyskinesia [Unknown]
  - Stoma site hypergranulation [Unknown]
  - Device leakage [Unknown]
  - Stoma site extravasation [Not Recovered/Not Resolved]
  - Fall [Unknown]
  - Thermal burn [Unknown]
  - Device use issue [Unknown]
  - Pyrexia [Unknown]
  - Fall [Unknown]
  - Fall [Recovered/Resolved]
  - On and off phenomenon [Unknown]
  - On and off phenomenon [Unknown]
  - On and off phenomenon [Unknown]
  - Device breakage [Unknown]
  - Device issue [Unknown]
  - Incorrect route of product administration [Unknown]
  - Product administration error [Unknown]
  - Stoma site pain [Unknown]
  - Incontinence [Unknown]
  - Stoma site discharge [Unknown]
  - Device physical property issue [Recovered/Resolved]
  - Reflux gastritis [Not Recovered/Not Resolved]
  - Fall [Unknown]
  - Fall [Unknown]
  - On and off phenomenon [Unknown]
  - On and off phenomenon [Recovered/Resolved]
  - Dyskinesia [Unknown]
  - Bradykinesia [Unknown]
  - Product use complaint [Unknown]
  - Off label use [Unknown]
  - Mobility decreased [Unknown]
  - Freezing phenomenon [Recovered/Resolved]

NARRATIVE: CASE EVENT DATE: 20180604
